FAERS Safety Report 5210087-4 (Version None)
Quarter: 2006Q4

REPORT INFORMATION
  Report Type: 
  Country: None (occurrence: None)
  Receive Date: 20061103
  Receipt Date: 20060727
  Transmission Date: 20070319
  Serious: Yes (Other)
  Sender: FDA-Public Use
  Company Number: 457421

PATIENT
  Age: 70 Year
  Sex: Female

DRUGS (4)
  1. BONIVA [Suspect]
     Indication: OSTEOPOROSIS
     Dosage: 3 MG
     Dates: start: 20060615
  2. OXYCONTIN [Concomitant]
  3. 1 CONCOMITANT DRUG (GENERIC UNKNOWN) [Concomitant]
  4. POTASSIUM (POTASSIUM) [Concomitant]

REACTIONS (4)
  - CONSTIPATION [None]
  - HEADACHE [None]
  - HEART RATE INCREASED [None]
  - MYALGIA [None]
